FAERS Safety Report 9421022 (Version 1)
Quarter: 2013Q3

REPORT INFORMATION
  Report Type: Spontaneous
  Country: NO (occurrence: NO)
  Receive Date: 20130725
  Receipt Date: 20130725
  Transmission Date: 20140515
  Serious: Yes (Death, Other)
  Sender: FDA-Public Use
  Company Number: NO-009507513-1307NOR013508

PATIENT
  Age: 92 Year
  Sex: Male

DRUGS (2)
  1. ZOCOR [Suspect]
     Indication: CARDIOVASCULAR DISORDER
     Dosage: 20 MG, QD
     Route: 048
     Dates: start: 2008
  2. EMCONCOR [Suspect]
     Indication: CARDIOVASCULAR DISORDER
     Dosage: 2.5 MG, QD
     Route: 048
     Dates: start: 2009

REACTIONS (1)
  - Acute hepatic failure [Fatal]
